FAERS Safety Report 9849212 (Version 1)
Quarter: 2014Q1

REPORT INFORMATION
  Report Type: Spontaneous
  Country: US (occurrence: None)
  Receive Date: 20140127
  Receipt Date: 20140127
  Transmission Date: 20141002
  Serious: Yes (Other)
  Sender: FDA-Public Use
  Company Number: None

PATIENT
  Age: 67 Year
  Sex: Male
  Weight: 81.65 kg

DRUGS (1)
  1. KETACONAZOLE [Suspect]
     Indication: PROSTATE CANCER

REACTIONS (4)
  - Vomiting [None]
  - Hot flush [None]
  - Rash [None]
  - Blood urine present [None]
